FAERS Safety Report 8310314-0 (Version None)
Quarter: 2012Q2

REPORT INFORMATION
  Report Type: 
  Country: None (occurrence: None)
  Receive Date: 20120425
  Receipt Date: 20120420
  Transmission Date: 20120825
  Serious: Yes (Other)
  Sender: FDA-Public Use
  Company Number: PHHY2012BR013670

PATIENT
  Sex: Female

DRUGS (5)
  1. APRESOLINE [Suspect]
  2. YASMIN [Concomitant]
     Indication: CONTRACEPTION
  3. DIOVAN HCT [Suspect]
     Indication: HYPERTENSION
     Dosage: ONE TABLET DAILY
  4. ALDOMET [Concomitant]
  5. DIOVAN HCT [Suspect]
     Dosage: 160/12.5 MG, UNK DAILY  DOSE
     Dates: start: 20120214

REACTIONS (4)
  - DIABETES MELLITUS [None]
  - BLOOD PRESSURE INCREASED [None]
  - MATERNAL EXPOSURE DURING PREGNANCY [None]
  - PREMATURE DELIVERY [None]
